FAERS Safety Report 6492260-0 (Version None)
Quarter: 2009Q4

REPORT INFORMATION
  Report Type: 
  Country: None (occurrence: None)
  Receive Date: 20091214
  Receipt Date: 20091201
  Transmission Date: 20100525
  Serious: Yes (Hospitalization)
  Sender: FDA-Public Use
  Company Number: PHHY2009GB49502

PATIENT
  Sex: Male

DRUGS (1)
  1. CLOZARIL [Suspect]
     Indication: SCHIZOPHRENIA
     Dosage: UNK
     Dates: start: 20081215

REACTIONS (6)
  - DELIRIUM [None]
  - HAEMOGLOBIN DECREASED [None]
  - PLATELET COUNT INCREASED [None]
  - POST PROCEDURAL INFECTION [None]
  - STAPHYLOCOCCAL INFECTION [None]
  - SURGERY [None]
